FAERS Safety Report 5534212-0 (Version None)
Quarter: 2007Q4

REPORT INFORMATION
  Report Type: 
  Country: None (occurrence: None)
  Receive Date: 20071130
  Receipt Date: 20071115
  Transmission Date: 20080405
  Serious: Yes (Hospitalization)
  Sender: FDA-Public Use
  Company Number: 8028242

PATIENT
  Sex: Female

DRUGS (1)
  1. KEPPRA [Suspect]
     Dosage: IV
     Route: 042
     Dates: start: 20070101

REACTIONS (3)
  - DISEASE RECURRENCE [None]
  - ILEUS PARALYTIC [None]
  - PARTIAL SEIZURES [None]
